FAERS Safety Report 8326598-9 (Version None)
Quarter: 2012Q2

REPORT INFORMATION
  Report Type: 
  Country: None (occurrence: None)
  Receive Date: 20120501
  Receipt Date: 20110628
  Transmission Date: 20120825
  Serious: No
  Sender: FDA-Public Use
  Company Number: US-SANOFI-AVENTIS-2011SA043360

PATIENT
  Sex: Female

DRUGS (1)
  1. APIDRA [Suspect]
     Route: 058

REACTIONS (7)
  - DIABETES MELLITUS INADEQUATE CONTROL [None]
  - HYPERHIDROSIS [None]
  - THERAPEUTIC RESPONSE DELAYED [None]
  - HYPOGLYCAEMIA [None]
  - SWELLING [None]
  - DEPRESSED LEVEL OF CONSCIOUSNESS [None]
  - NAUSEA [None]
